FAERS Safety Report 7993476-4 (Version None)
Quarter: 2011Q4

REPORT INFORMATION
  Report Type: 
  Country: None (occurrence: None)
  Receive Date: 20111219
  Receipt Date: 20111214
  Transmission Date: 20120403
  Serious: Yes (Death)
  Sender: FDA-Public Use
  Company Number: CHPA2011US017956

PATIENT
  Sex: Male

DRUGS (3)
  1. DIOVAN [Concomitant]
     Indication: CARDIAC FAILURE CONGESTIVE
  2. DIOVAN [Concomitant]
     Indication: HYPERTENSION
     Route: 048
  3. MAALOX MS TOTAL STOMACH RELIEF [Suspect]
     Indication: ABDOMINAL DISCOMFORT
     Dosage: 3 TSP, BID, PRN
     Route: 048
     Dates: start: 20090101, end: 20090101

REACTIONS (2)
  - DEATH [None]
  - UNDERDOSE [None]
